FAERS Safety Report 25394695 (Version 1)
Quarter: 2025Q2

REPORT INFORMATION
  Report Type: Spontaneous
  Country: CN (occurrence: CN)
  Receive Date: 20250604
  Receipt Date: 20250604
  Transmission Date: 20250717
  Serious: Yes (Hospitalization)
  Sender: HETERO
  Company Number: CN-AMAROX PHARMA-HET2025CN02896

PATIENT
  Age: 59 Year
  Sex: Male

DRUGS (2)
  1. VALGANCICLOVIR [Suspect]
     Active Substance: VALGANCICLOVIR
     Indication: Infection prophylaxis
     Route: 048
     Dates: start: 20250422, end: 20250521
  2. TACROLIMUS [Suspect]
     Active Substance: TACROLIMUS
     Indication: Immunosuppression
     Route: 048
     Dates: start: 20250403, end: 20250521

REACTIONS (2)
  - Oedema peripheral [Recovering/Resolving]
  - Renal injury [Recovering/Resolving]

NARRATIVE: CASE EVENT DATE: 20250506
